FAERS Safety Report 10009971 (Version 2)
Quarter: 2014Q1

REPORT INFORMATION
  Report Type: Spontaneous
  Country: US (occurrence: US)
  Receive Date: 20140312
  Receipt Date: 20140312
  Transmission Date: 20141002
  Serious: No
  Sender: FDA-Public Use
  Company Number: US-INCYTE CORPORATION-2013IN000563

PATIENT
  Age: 83 Year
  Sex: Male
  Weight: 94.33 kg

DRUGS (7)
  1. JAKAFI [Suspect]
     Indication: MYELOFIBROSIS
     Dosage: 10 MG, BID
     Route: 048
     Dates: start: 201209
  2. JAKAFI [Suspect]
     Dosage: 15 MG, BID
     Route: 048
     Dates: end: 20130228
  3. JAKAFI [Suspect]
     Dosage: 15 MG, QD
     Route: 048
     Dates: start: 20130301, end: 20130329
  4. ASPIRIN [Concomitant]
     Dosage: 81 MG, QD
     Route: 048
  5. VITAMIN B12 [Concomitant]
     Dosage: 1 DF, QD
     Route: 048
  6. ASCORBIC ACID [Concomitant]
     Dosage: 500 MG, QD
     Route: 048
  7. OMEPRAZOLE [Concomitant]
     Dosage: 20 MG, QD
     Route: 048

REACTIONS (6)
  - Skin irritation [Recovered/Resolved]
  - Rash pruritic [Recovered/Resolved]
  - Burning sensation [Recovered/Resolved]
  - Fatigue [Not Recovered/Not Resolved]
  - Aspartate aminotransferase increased [Unknown]
  - Alanine aminotransferase increased [Unknown]
